FAERS Safety Report 4734725-5 (Version None)
Quarter: 2005Q3

REPORT INFORMATION
  Report Type: 
  Country: None (occurrence: None)
  Receive Date: 20050804
  Receipt Date: 20050627
  Transmission Date: 20060218
  Serious: Yes (Other)
  Sender: FDA-Public Use
  Company Number: CA-GLAXOSMITHKLINE-A0564774A

PATIENT
  Age: 38 Year
  Sex: Male
  Weight: 59.1 kg

DRUGS (4)
  1. ZIAGEN [Suspect]
     Indication: HIV INFECTION
     Dosage: 1TAB TWICE PER DAY
     Dates: start: 20050303, end: 20050622
  2. 3TC [Suspect]
     Indication: HIV INFECTION
     Dates: start: 20050510, end: 20050622
  3. REYATAZ [Suspect]
     Indication: DRUG USE FOR UNKNOWN INDICATION
     Dosage: 2CAP PER DAY
     Dates: start: 20050303, end: 20050622
  4. KADIAN [Concomitant]
     Indication: PAIN
     Dates: start: 20050510

REACTIONS (4)
  - MALAISE [None]
  - NAIL DISORDER [None]
  - NAUSEA [None]
  - WEIGHT DECREASED [None]
